FAERS Safety Report 6295890-4 (Version None)
Quarter: 2009Q3

REPORT INFORMATION
  Report Type: 
  Country: None (occurrence: None)
  Receive Date: 20090804
  Receipt Date: 20090723
  Transmission Date: 20100115
  Serious: Yes (Other)
  Sender: FDA-Public Use
  Company Number: PHEH2008US05098

PATIENT
  Sex: Female

DRUGS (4)
  1. AREDIA [Suspect]
  2. ZOMETA [Suspect]
     Dosage: UNK
     Dates: start: 20010101
  3. FASLODEX [Concomitant]
     Dosage: UNK
  4. METHADONE [Concomitant]

REACTIONS (24)
  - ACCIDENTAL OVERDOSE [None]
  - ANXIETY [None]
  - BACK PAIN [None]
  - BONE DISORDER [None]
  - CHONDROMALACIA [None]
  - DEFORMITY [None]
  - EMOTIONAL DISTRESS [None]
  - EYE INFECTION [None]
  - FACIAL BONES FRACTURE [None]
  - FALL [None]
  - HAND FRACTURE [None]
  - INFECTION [None]
  - INJURY [None]
  - JOINT EFFUSION [None]
  - METASTASES TO LIVER [None]
  - METASTASES TO LUNG [None]
  - MOUTH ULCERATION [None]
  - OSTEOARTHRITIS [None]
  - OSTEONECROSIS [None]
  - PAIN [None]
  - PAIN IN JAW [None]
  - PULMONARY OEDEMA [None]
  - SYNOVIAL CYST [None]
  - TONGUE ULCERATION [None]
